FAERS Safety Report 8454152-7 (Version None)
Quarter: 2012Q2

REPORT INFORMATION
  Report Type: 
  Country: None (occurrence: None)
  Receive Date: 20120620
  Receipt Date: 20120605
  Transmission Date: 20120825
  Serious: Yes (Other)
  Sender: FDA-Public Use
  Company Number: CA-FRI-1000031006

PATIENT
  Sex: Male

DRUGS (2)
  1. CELEXA [Suspect]
     Indication: DEPRESSION
     Dosage: 10 MG
     Route: 048
     Dates: start: 20120519, end: 20120522
  2. CELEXA [Suspect]
     Dosage: 10 MG
     Route: 048
     Dates: start: 20120524, end: 20120525

REACTIONS (1)
  - HYPERGLYCAEMIA [None]
